FAERS Safety Report 13093360 (Version 1)
Quarter: 2017Q1

REPORT INFORMATION
  Report Type: Spontaneous
  Country: AU (occurrence: AU)
  Receive Date: 20170106
  Receipt Date: 20170106
  Transmission Date: 20170428
  Serious: Yes (Other)
  Sender: FDA-Public Use
  Company Number: AU-GLAXOSMITHKLINE-AU2016GSK193424

PATIENT
  Age: 40 Year
  Sex: Female

DRUGS (2)
  1. NICABATE [Suspect]
     Active Substance: NICOTINE
     Indication: SMOKING CESSATION THERAPY
     Dosage: UNK
  2. NICABATE [Suspect]
     Active Substance: NICOTINE
     Indication: SMOKING CESSATION THERAPY
     Dosage: 21 MG, UNK
     Route: 062
     Dates: start: 2016

REACTIONS (9)
  - Apparent death [Unknown]
  - Incorrect drug administration duration [Unknown]
  - Wrong technique in product usage process [Unknown]
  - Off label use [Unknown]
  - Viral infection [Unknown]
  - Influenza [Unknown]
  - Product quality issue [Unknown]
  - Product use issue [Unknown]
  - Breast feeding [Unknown]
